FAERS Safety Report 24400111 (Version 3)
Quarter: 2025Q2

REPORT INFORMATION
  Report Type: Spontaneous
  Country: US (occurrence: US)
  Receive Date: 20241005
  Receipt Date: 20250510
  Transmission Date: 20250716
  Serious: No
  Sender: SANOFI AVENTIS
  Company Number: US-SA-2024SA281557

PATIENT
  Age: 17 Year
  Sex: Male

DRUGS (3)
  1. DUPIXENT [Suspect]
     Active Substance: DUPILUMAB
     Indication: Eczema
     Route: 058
     Dates: start: 20240729, end: 20240729
  2. DUPIXENT [Suspect]
     Active Substance: DUPILUMAB
     Dosage: 300 MG, QOW
     Route: 058
     Dates: start: 202408, end: 20240923
  3. DUPIXENT [Suspect]
     Active Substance: DUPILUMAB
     Dosage: 300 MG, QOW

REACTIONS (10)
  - Pyrexia [Recovered/Resolved]
  - Nasal congestion [Recovering/Resolving]
  - Scab [Recovered/Resolved]
  - Erythema [Recovered/Resolved]
  - Headache [Recovering/Resolving]
  - Oropharyngeal pain [Not Recovered/Not Resolved]
  - Arthralgia [Unknown]
  - Eczema [Unknown]
  - Rash erythematous [Unknown]
  - Inappropriate schedule of product administration [Unknown]

NARRATIVE: CASE EVENT DATE: 20240101
